FAERS Safety Report 5837818-4 (Version None)
Quarter: 2008Q3

REPORT INFORMATION
  Report Type: 
  Country: None (occurrence: None)
  Receive Date: 20080808
  Receipt Date: 20080729
  Transmission Date: 20090109
  Serious: Yes (Other)
  Sender: FDA-Public Use
  Company Number: CA-JNJFOC-20080707251

PATIENT
  Sex: Female
  Weight: 54.1 kg

DRUGS (1)
  1. REMICADE [Suspect]
     Indication: CROHN'S DISEASE
     Dosage: ADMINISTERED 6 INFUSIONS OF INFLIXIMAB
     Route: 042

REACTIONS (2)
  - BREAST CANCER [None]
  - IMPAIRED HEALING [None]
